FAERS Safety Report 7216084-1 (Version None)
Quarter: 2011Q1

REPORT INFORMATION
  Report Type: 
  Country: None (occurrence: None)
  Receive Date: 20110107
  Receipt Date: 20110105
  Transmission Date: 20110831
  Serious: Yes (Hospitalization)
  Sender: FDA-Public Use
  Company Number: US-BRISTOL-MYERS SQUIBB COMPANY-15433378

PATIENT
  Age: 60 Year
  Sex: Female

DRUGS (5)
  1. GLIMEPIRIDE [Suspect]
     Indication: DIABETES MELLITUS
  2. PLACEBO [Suspect]
     Indication: TYPE 2 DIABETES MELLITUS
  3. METFORMIN HCL [Suspect]
     Indication: DIABETES MELLITUS
  4. BLINDED: SAXAGLIPTIN [Suspect]
     Indication: TYPE 2 DIABETES MELLITUS
     Dosage: DRUG INTERRUPTED ON 01DEC2010. RESUMED ON 01JAN2011.
     Dates: start: 20101025
  5. LANTUS [Suspect]
     Indication: DIABETES MELLITUS

REACTIONS (1)
  - PANCREATITIS [None]
